FAERS Safety Report 14072100 (Version 2)
Quarter: 2019Q3

REPORT INFORMATION
  Report Type: Spontaneous
  Country: US (occurrence: US)
  Receive Date: 20171010
  Receipt Date: 20190924
  Transmission Date: 20191004
  Serious: No
  Sender: FDA-Public Use
  Company Number: US-SA-2017SA159350

PATIENT
  Age: 62 Year
  Sex: Female

DRUGS (1)
  1. DUPIXENT [Suspect]
     Active Substance: DUPILUMAB
     Indication: DERMATITIS ATOPIC
     Dosage: 300 MG,QOW
     Route: 058
     Dates: start: 201802

REACTIONS (4)
  - Muscle disorder [Not Recovered/Not Resolved]
  - Dysstasia [Not Recovered/Not Resolved]
  - Eyelids pruritus [Not Recovered/Not Resolved]
  - Lacrimation increased [Not Recovered/Not Resolved]

NARRATIVE: CASE EVENT DATE: 20170810
